FAERS Safety Report 24328428 (Version 1)
Quarter: 2024Q3

REPORT INFORMATION
  Report Type: Spontaneous
  Country: PT (occurrence: PT)
  Receive Date: 20240917
  Receipt Date: 20240917
  Transmission Date: 20241017
  Serious: Yes (Other)
  Sender: FRESENIUS KABI
  Company Number: None

PATIENT
  Age: 48 Year
  Sex: Male

DRUGS (4)
  1. OXALIPLATIN [Suspect]
     Active Substance: OXALIPLATIN
     Indication: Rectal cancer
     Dosage: FORM: CONCENTRATE FOR SOLUTION FOR INFUSION
     Route: 042
     Dates: start: 20230814, end: 20230814
  2. OXALIPLATIN [Suspect]
     Active Substance: OXALIPLATIN
     Dosage: FORM: CONCENTRATE FOR SOLUTION FOR INFUSION
     Route: 042
     Dates: start: 20231030, end: 20231030
  3. OXALIPLATIN [Suspect]
     Active Substance: OXALIPLATIN
     Dosage: FORM: CONCENTRATE FOR SOLUTION FOR INFUSION
     Route: 042
     Dates: start: 20230918, end: 20230918
  4. OXALIPLATIN [Suspect]
     Active Substance: OXALIPLATIN
     Dosage: IN SLOW FLOW (40 CC/H), WITH AN INCREASE IN FLOW EVERY 30 MINUTES UP TO A MAXIMUM OF 150CC/H?FORM: C
     Route: 042
     Dates: start: 20231009, end: 20231009

REACTIONS (5)
  - Urticaria [Recovered/Resolved]
  - Paraesthesia [Recovered/Resolved]
  - Feeling hot [Recovered/Resolved]
  - Plantar erythema [Recovered/Resolved]
  - Erythema [Recovered/Resolved]

NARRATIVE: CASE EVENT DATE: 20230814
